FAERS Safety Report 5202436-8 (Version None)
Quarter: 2007Q1

REPORT INFORMATION
  Report Type: 
  Country: None (occurrence: None)
  Receive Date: 20070109
  Receipt Date: 20070102
  Transmission Date: 20070707
  Serious: Yes (Other)
  Sender: FDA-Public Use
  Company Number: FR-BRISTOL-MYERS SQUIBB COMPANY-13632591

PATIENT

DRUGS (1)
  1. TRIAMCINOLONE ACETONIDE [Suspect]
     Indication: DIABETIC RETINAL OEDEMA
     Route: 031

REACTIONS (2)
  - CONJUNCTIVAL OEDEMA [None]
  - HYPOTONIA [None]
